FAERS Safety Report 6537007-4 (Version None)
Quarter: 2010Q1

REPORT INFORMATION
  Report Type: 
  Country: None (occurrence: None)
  Receive Date: 20100107
  Receipt Date: 20091221
  Transmission Date: 20100710
  Serious: Yes (Other)
  Sender: FDA-Public Use
  Company Number: 2009-5009

PATIENT
  Age: 52 Year
  Sex: Male
  Weight: 70 kg

DRUGS (1)
  1. SOMATULINE AUTOGEL  (LANREOTIDE AUTOGEL) (LANREOTIDE ACETATE) [Suspect]
     Indication: ACROMEGALY
     Dosage: (60 MG, 1 IN 1 M), INTRAMUSCULAR
     Route: 030
     Dates: start: 20090801

REACTIONS (2)
  - EXCORIATION [None]
  - STEATORRHOEA [None]
